FAERS Safety Report 8900685 (Version 3)
Quarter: 2012Q4

REPORT INFORMATION
  Report Type: 
  Country: JP (occurrence: JP)
  Receive Date: 20121109
  Receipt Date: 20121214
  Transmission Date: 20130627
  Serious: Yes (Hospitalization, Disabling)
  Sender: FDA-Public Use
  Company Number: JP-PFIZER INC-2012270286

PATIENT
  Age: 50 Year
  Sex: Female
  Weight: 55 kg

DRUGS (1)
  1. NASANYL [Suspect]
     Indication: ENDOMETRIOSIS
     Dosage: 0.2 %, 1x/day
     Route: 045
     Dates: start: 20120923, end: 20120923

REACTIONS (4)
  - Cerebral infarction [Recovering/Resolving]
  - Cerebral vasoconstriction [Recovering/Resolving]
  - Posterior reversible encephalopathy syndrome [Recovering/Resolving]
  - Blindness cortical [Recovering/Resolving]
